FAERS Safety Report 7843072-4 (Version None)
Quarter: 2011Q4

REPORT INFORMATION
  Report Type: 
  Country: None (occurrence: None)
  Receive Date: 20111020
  Receipt Date: 20110929
  Transmission Date: 20120403
  Serious: Yes (Other)
  Sender: FDA-Public Use
  Company Number: 2011SP046369

PATIENT
  Age: 56 Year

DRUGS (4)
  1. DAUNORUBICIN HCL [Concomitant]
  2. CYTARABINE [Concomitant]
  3. POSACONAZOLE [Suspect]
     Indication: PRODUCT USED FOR UNKNOWN INDICATION
     Dosage: 200 MG;QD
  4. DASATIMIB [Suspect]
     Indication: PRODUCT USED FOR UNKNOWN INDICATION
     Dosage: 140 MG;QD

REACTIONS (2)
  - BONE MARROW FAILURE [None]
  - DRUG INTERACTION [None]
